FAERS Safety Report 17191014 (Version 1)
Quarter: 2019Q4

REPORT INFORMATION
  Report Type: Spontaneous
  Country: DE (occurrence: DE)
  Receive Date: 20191223
  Receipt Date: 20191223
  Transmission Date: 20200122
  Serious: Yes (Death, Hospitalization)
  Sender: FDA-Public Use
  Company Number: DE-TEVA-2019-DE-1155605

PATIENT
  Age: 57 Year
  Sex: Male

DRUGS (9)
  1. DEKRISTOL [Concomitant]
     Active Substance: CHOLECALCIFEROL
     Dosage: NK MG, NK
  2. DOXORUBICIN [Suspect]
     Active Substance: DOXORUBICIN
     Dosage: 100 MG, LAST ON 04.01.2018
  3. VINCRISTINE [Suspect]
     Active Substance: VINCRISTINE
     Dosage: 2 MG, LAST ON 04.01.2018
  4. ALLOPURINOL. [Concomitant]
     Active Substance: ALLOPURINOL
     Dosage: 100 MG, 1X1
  5. CYCLOPHOSPHAMIDE. [Suspect]
     Active Substance: CYCLOPHOSPHAMIDE
     Dosage: 150 MG, LAST ON 04.01.2018
  6. COTRIM FORTE [Concomitant]
     Active Substance: SULFAMETHOXAZOLE\TRIMETHOPRIM
     Dosage: NK MG, I, MI, FR 1X1
  7. PREDNISOLONE. [Suspect]
     Active Substance: PREDNISOLONE
     Dosage: NK MG, 2-0-0-0; FROM 1ST TO 3RD DAY AFTER CHEMO
  8. RITUXIMAB. [Suspect]
     Active Substance: RITUXIMAB
     Dosage: 760 MG, LAST ON 04.01.2018
  9. UROMITEXAN [Concomitant]
     Active Substance: MESNA
     Dosage: NK MG, THE DAY BEFORE CHEMO

REACTIONS (3)
  - Leukopenia [Unknown]
  - General physical health deterioration [Unknown]
  - Pyrexia [Unknown]
